FAERS Safety Report 6491747-4 (Version None)
Quarter: 2009Q4

REPORT INFORMATION
  Report Type: 
  Country: None (occurrence: None)
  Receive Date: 20091208
  Receipt Date: 20091124
  Transmission Date: 20100525
  Serious: Yes (Hospitalization)
  Sender: FDA-Public Use
  Company Number: 2008-03788

PATIENT
  Age: 76 Year
  Sex: Female
  Weight: 48 kg

DRUGS (5)
  1. VELCADE [Suspect]
     Indication: MULTIPLE MYELOMA
     Dosage: 1.4 MG, INTRAVENOUS
     Route: 042
     Dates: start: 20080819, end: 20080829
  2. DEXAMETHASONE TAB [Suspect]
     Indication: MULTIPLE MYELOMA
     Dosage: 20 MG, ORAL
     Route: 048
     Dates: start: 20080819, end: 20080830
  3. SULFAMETHOXAZOLE AND TRIMETHOPRIM [Suspect]
     Indication: PROPHYLAXIS
     Dosage: 1 DF, ORAL
     Route: 048
     Dates: start: 20080821
  4. ALLOPURINOL [Concomitant]
  5. MAGNESIUM OXIDE (MAGNESIUM OXIDE) [Concomitant]

REACTIONS (11)
  - CONSTIPATION [None]
  - HERPES ZOSTER DISSEMINATED [None]
  - IMMUNODEFICIENCY [None]
  - MOVEMENT DISORDER [None]
  - OESOPHAGEAL CANDIDIASIS [None]
  - ORTHOSTATIC HYPOTENSION [None]
  - PERIPHERAL MOTOR NEUROPATHY [None]
  - PYREXIA [None]
  - RASH GENERALISED [None]
  - SCAB [None]
  - VARICELLA [None]
